FAERS Safety Report 8735875 (Version 3)
Quarter: 2012Q4

REPORT INFORMATION
  Report Type: 
  Country: US (occurrence: US)
  Receive Date: 20120822
  Receipt Date: 20120913
  Transmission Date: 20130627
  Serious: No
  Sender: FDA-Public Use
  Company Number: US-PFIZER INC-2012203583

PATIENT
  Sex: Female

DRUGS (1)
  1. NICOTROL [Suspect]
     Dosage: Inhale between 6 and 16 cartridges per day as directed

REACTIONS (3)
  - Oropharyngeal pain [Unknown]
  - Cheilitis [Unknown]
  - Malaise [Unknown]
